FAERS Safety Report 17572052 (Version 1)
Quarter: 2020Q1

REPORT INFORMATION
  Report Type: Spontaneous
  Country: IT (occurrence: IT)
  Receive Date: 20200323
  Receipt Date: 20200323
  Transmission Date: 20200409
  Serious: Yes (Other)
  Sender: FDA-Public Use
  Company Number: IT-GUERBET-IT-20200023

PATIENT
  Sex: Male
  Weight: 86 kg

DRUGS (1)
  1. OPTIRAY 350 [Suspect]
     Active Substance: IOVERSOL
     Indication: PRODUCT USED FOR UNKNOWN INDICATION
     Route: 042
     Dates: start: 20200127, end: 20200127

REACTIONS (3)
  - Loss of consciousness [Unknown]
  - Burning sensation [Unknown]
  - Cough [Unknown]

NARRATIVE: CASE EVENT DATE: 20200127
